FAERS Safety Report 22164442 (Version 1)
Quarter: 2023Q2

REPORT INFORMATION
  Report Type: Spontaneous
  Country: US (occurrence: US)
  Receive Date: 20230403
  Receipt Date: 20230403
  Transmission Date: 20230722
  Serious: No
  Sender: FDA-Public Use
  Company Number: US-009507513-2303USA006672

PATIENT
  Age: 45 Year
  Sex: Female

DRUGS (1)
  1. BELSOMRA [Suspect]
     Active Substance: SUVOREXANT
     Indication: Insomnia
     Dosage: 10 MG DAILY
     Route: 048

REACTIONS (3)
  - Alcohol abuse [Unknown]
  - Abnormal dreams [Recovered/Resolved]
  - Labelled drug-food interaction issue [Unknown]
